FAERS Safety Report 7998227-5 (Version None)
Quarter: 2011Q4

REPORT INFORMATION
  Report Type: 
  Country: None (occurrence: None)
  Receive Date: 20111221
  Receipt Date: 20110502
  Transmission Date: 20120403
  Serious: No
  Sender: FDA-Public Use
  Company Number: US-GLAXOSMITHKLINE-A0925332A

PATIENT
  Age: 63 Year
  Sex: Male

DRUGS (11)
  1. TRICOR [Concomitant]
  2. HYDROCHLOROTHIAZIDE [Concomitant]
  3. LOVAZA [Suspect]
     Indication: PRODUCT USED FOR UNKNOWN INDICATION
     Dosage: 2G TWICE PER DAY
     Route: 048
     Dates: start: 20060101
  4. FINASTERIDE [Concomitant]
  5. ASPIRIN [Concomitant]
  6. SIMVASTATIN [Concomitant]
  7. METOPROLOL TARTRATE [Concomitant]
  8. CELEXA [Concomitant]
  9. METFORMIN HCL [Concomitant]
  10. LISINOPRIL [Concomitant]
  11. MULTI-VITAMIN [Concomitant]

REACTIONS (1)
  - BACK PAIN [None]
